FAERS Safety Report 12068292 (Version 1)
Quarter: 2016Q1

REPORT INFORMATION
  Report Type: Spontaneous
  Country: US (occurrence: US)
  Receive Date: 20160211
  Receipt Date: 20160211
  Transmission Date: 20160526
  Serious: No
  Sender: FDA-Public Use
  Company Number: US-SMITH AND NEPHEW, INC-2015SMT00503

PATIENT
  Age: 45 Year
  Sex: Female
  Weight: 65.76 kg

DRUGS (1)
  1. REGRANEX [Suspect]
     Active Substance: BECAPLERMIN
     Indication: POSTOPERATIVE WOUND COMPLICATION
     Dosage: UNK, 2X/DAY
     Route: 061
     Dates: start: 20151030

REACTIONS (3)
  - Off label use [Not Recovered/Not Resolved]
  - Application site discharge [Recovering/Resolving]
  - Inappropriate schedule of drug administration [Not Recovered/Not Resolved]

NARRATIVE: CASE EVENT DATE: 20151030
